FAERS Safety Report 18546929 (Version 3)
Quarter: 2021Q3

REPORT INFORMATION
  Report Type: Spontaneous
  Country: US (occurrence: US)
  Receive Date: 20201125
  Receipt Date: 20210920
  Transmission Date: 20211014
  Serious: No
  Sender: FDA-Public Use
  Company Number: US-PFIZER INC-2018500396

PATIENT
  Age: 76 Year
  Sex: Female

DRUGS (1)
  1. LYRICA [Suspect]
     Active Substance: PREGABALIN
     Indication: POLYNEUROPATHY IDIOPATHIC PROGRESSIVE
     Dosage: 150 MG, 2X/DAY
     Route: 048

REACTIONS (3)
  - Nervousness [Unknown]
  - Off label use [Unknown]
  - Disturbance in attention [Unknown]
